FAERS Safety Report 11791781 (Version 3)
Quarter: 2016Q1

REPORT INFORMATION
  Report Type: Spontaneous
  Country: JP (occurrence: JP)
  Receive Date: 20151201
  Receipt Date: 20160114
  Transmission Date: 20160525
  Serious: Yes (Death, Hospitalization, Other)
  Sender: FDA-Public Use
  Company Number: JP-PFIZER INC-2015398820

PATIENT
  Age: 78 Year
  Sex: Male

DRUGS (1)
  1. TORISEL [Suspect]
     Active Substance: TEMSIROLIMUS
     Indication: RENAL CANCER
     Dosage: UNK
     Route: 041

REACTIONS (4)
  - Renal haemorrhage [Not Recovered/Not Resolved]
  - Disease progression [Fatal]
  - Fall [Unknown]
  - Renal cancer [Fatal]

NARRATIVE: CASE EVENT DATE: 20151104
